FAERS Safety Report 6596862-2 (Version None)
Quarter: 2010Q1

REPORT INFORMATION
  Report Type: 
  Country: None (occurrence: None)
  Receive Date: 20100212
  Receipt Date: 20100202
  Transmission Date: 20100710
  Serious: Yes (Hospitalization)
  Sender: FDA-Public Use
  Company Number: 2009-197231-NL

PATIENT
  Age: 22 Year
  Sex: Female
  Weight: 88.4514 kg

DRUGS (3)
  1. NUVARING [Suspect]
     Indication: CONTRACEPTION
     Dosage: 1 DF
  2. LECITHIN [Concomitant]
  3. CIPROFLOXACIN [Concomitant]

REACTIONS (22)
  - ABDOMINAL PAIN [None]
  - ACNE [None]
  - ACTIVATED PARTIAL THROMBOPLASTIN TIME PROLONGED [None]
  - APATHY [None]
  - ARTHRALGIA [None]
  - CELLULITIS [None]
  - CHLAMYDIA TEST POSITIVE [None]
  - DEPRESSION [None]
  - HERPES SIMPLEX [None]
  - HYPERSENSITIVITY [None]
  - HYPERSOMNIA [None]
  - MENSTRUATION IRREGULAR [None]
  - MOOD SWINGS [None]
  - MYOPIA [None]
  - NAUSEA [None]
  - PAIN [None]
  - PARTNER STRESS [None]
  - SMEAR CERVIX ABNORMAL [None]
  - SUBCUTANEOUS ABSCESS [None]
  - TRANSVERSE SINUS THROMBOSIS [None]
  - VOMITING [None]
  - WEIGHT INCREASED [None]
